FAERS Safety Report 14684561 (Version 1)
Quarter: 2018Q1

REPORT INFORMATION
  Report Type: Spontaneous
  Country: US (occurrence: US)
  Receive Date: 20180327
  Receipt Date: 20180327
  Transmission Date: 20180509
  Serious: Yes (Hospitalization, Other)
  Sender: FDA-Public Use
  Company Number: US-BAYER-2018-057306

PATIENT
  Age: 33 Year
  Sex: Female

DRUGS (1)
  1. GADAVIST [Suspect]
     Active Substance: GADOBUTROL
     Indication: NUCLEAR MAGNETIC RESONANCE IMAGING ABDOMINAL
     Dosage: 5 ML, ONCE
     Route: 042
     Dates: start: 20180215

REACTIONS (5)
  - Throat clearing [None]
  - Pharyngeal oedema [None]
  - Urticaria [None]
  - Anaphylactic reaction [None]
  - Sneezing [None]

NARRATIVE: CASE EVENT DATE: 20180215
